FAERS Safety Report 10159720 (Version 1)
Quarter: 2014Q2

REPORT INFORMATION
  Report Type: Spontaneous
  Country: US (occurrence: US)
  Receive Date: 20140508
  Receipt Date: 20140508
  Transmission Date: 20141212
  Serious: No
  Sender: FDA-Public Use
  Company Number: US-GLAXOSMITHKLINE-A1023117A

PATIENT
  Age: 50 Year
  Sex: Female

DRUGS (6)
  1. TYKERB [Suspect]
     Indication: BREAST CANCER
     Dosage: 750MG PER DAY
     Route: 048
     Dates: start: 20130119
  2. STEROID [Suspect]
     Indication: PRODUCT USED FOR UNKNOWN INDICATION
  3. TYLENOL WITH CODEINE [Concomitant]
  4. FISH OIL [Concomitant]
  5. MULTIVITAMIN [Concomitant]
  6. METOPROLOL [Concomitant]

REACTIONS (2)
  - Mood altered [Unknown]
  - Crying [Unknown]
